FAERS Safety Report 9356210 (Version 2)
Quarter: 2013Q3

REPORT INFORMATION
  Report Type: Spontaneous
  Country: US (occurrence: US)
  Receive Date: 20130619
  Receipt Date: 20130717
  Transmission Date: 20140515
  Serious: No
  Sender: FDA-Public Use
  Company Number: US-009507513-1306USA008964

PATIENT
  Sex: 0

DRUGS (2)
  1. COPPERTONE KIDS CONTINUOUS SPRAY SPF-50 [Suspect]
     Indication: PRODUCT USED FOR UNKNOWN INDICATION
     Dosage: UNK, QH
     Route: 061
  2. COPPERTONE WATER BABIES SUNSCREEN STICK SPF-55 [Suspect]
     Indication: PRODUCT USED FOR UNKNOWN INDICATION
     Dosage: UNK, QH
     Route: 061

REACTIONS (1)
  - Sunburn [Unknown]
